FAERS Safety Report 16252794 (Version 1)
Quarter: 2019Q2

REPORT INFORMATION
  Report Type: Spontaneous
  Country: US (occurrence: US)
  Receive Date: 20190429
  Receipt Date: 20190429
  Transmission Date: 20190711
  Serious: No
  Sender: FDA-Public Use
  Company Number: US-009507513-1904USA011439

PATIENT
  Sex: Female

DRUGS (1)
  1. TICE BCG [Suspect]
     Active Substance: BACILLUS CALMETTE-GUERIN SUBSTRAIN TICE LIVE ANTIGEN
     Indication: BLADDER CANCER
     Dosage: 50 MILLIGRAM, ONCE A WEEK
     Route: 043
     Dates: start: 201904

REACTIONS (2)
  - Accidental exposure to product [Unknown]
  - Bladder spasm [Recovered/Resolved]

NARRATIVE: CASE EVENT DATE: 201904
